FAERS Safety Report 7683391-8 (Version None)
Quarter: 2011Q3

REPORT INFORMATION
  Report Type: 
  Country: None (occurrence: None)
  Receive Date: 20110815
  Receipt Date: 20110808
  Transmission Date: 20111222
  Serious: Yes (Hospitalization, Other)
  Sender: FDA-Public Use
  Company Number: US-BAYER-201039082NA

PATIENT
  Age: 28 Year
  Sex: Female
  Weight: 104.31 kg

DRUGS (10)
  1. PROTONIX [Concomitant]
  2. RESTASIS [Concomitant]
  3. YASMIN [Suspect]
     Indication: ACNE
     Dosage: UNK
     Dates: start: 20050101, end: 20090101
  4. ALBUTEROL SULFATE AUTOHALER [Concomitant]
  5. IBUPROFEN [Concomitant]
  6. IMITREX [Concomitant]
  7. DROSPIRENONE AND ETHINYL ESTRADIOL [Suspect]
     Indication: ACNE
     Dosage: UNK
     Dates: start: 20050101, end: 20090101
  8. PREDNISONE [Concomitant]
  9. SYNTHROID [Concomitant]
  10. TYLENOL W/ CODEINE [Concomitant]

REACTIONS (2)
  - CHOLECYSTITIS CHRONIC [None]
  - GALLBLADDER DISORDER [None]
